FAERS Safety Report 7010615-2 (Version None)
Quarter: 2010Q3

REPORT INFORMATION
  Report Type: 
  Country: None (occurrence: None)
  Receive Date: 20100923
  Receipt Date: 20100914
  Transmission Date: 20110219
  Serious: Yes (Other)
  Sender: FDA-Public Use
  Company Number: US-JNJCH-2010021400

PATIENT
  Age: 4 Year
  Sex: Male
  Weight: 16 kg

DRUGS (4)
  1. BENADRYL [Suspect]
     Indication: VARICELLA
     Dosage: TEXT:3.75 ML
     Route: 048
  2. CALADRYL [Suspect]
     Indication: VARICELLA
     Dosage: TEXT:MORE THAN 90 ML
     Route: 061
  3. TRICYCLIC ANTIDEPRESSANTS [Concomitant]
     Indication: PRODUCT USED FOR UNKNOWN INDICATION
     Dosage: TEXT:UNKNOWN
     Route: 065
  4. PSEUDOEPHEDRINE [Concomitant]
     Indication: PRODUCT USED FOR UNKNOWN INDICATION
     Dosage: TEXT:UNKNOWN
     Route: 065

REACTIONS (4)
  - DRUG TOXICITY [None]
  - OVERDOSE [None]
  - TOXIC ENCEPHALOPATHY [None]
  - WRONG DRUG ADMINISTERED [None]
